FAERS Safety Report 23886103 (Version 1)
Quarter: 2024Q2

REPORT INFORMATION
  Report Type: Spontaneous
  Country: CH (occurrence: CH)
  Receive Date: 20240522
  Receipt Date: 20240522
  Transmission Date: 20240716
  Serious: Yes (Hospitalization, Other)
  Sender: FDA-Public Use
  Company Number: None

PATIENT
  Age: 84 Year
  Sex: Female
  Weight: 53.5 kg

DRUGS (10)
  1. LORAZEPAM [Suspect]
     Active Substance: LORAZEPAM
     Dosage: 2.5 MG, 1X/DAY (0-0-0-1)
     Route: 048
     Dates: start: 20210215, end: 2024
  2. MIRTAZAPINE [Suspect]
     Active Substance: MIRTAZAPINE
     Dosage: 15 MG, 1X/DAY (0.5-0-0)
     Route: 048
     Dates: start: 20240423, end: 20240428
  3. LEVOTHYROXINE [Concomitant]
     Active Substance: LEVOTHYROXINE\LEVOTHYROXINE SODIUM
     Indication: Hypothyroidism
     Dosage: 0.1 MG, DAILY
     Route: 048
     Dates: start: 20210121
  4. METOPROLOL SUCCINATE [Concomitant]
     Active Substance: METOPROLOL SUCCINATE
     Dosage: 50 MG, 2X/DAY
     Route: 048
     Dates: start: 20230614
  5. PANTOPRAZOLE SODIUM [Concomitant]
     Active Substance: PANTOPRAZOLE SODIUM
     Dosage: 20 MG, DAILY
     Route: 048
     Dates: start: 20210301
  6. PLAVIX [Concomitant]
     Active Substance: CLOPIDOGREL BISULFATE
     Indication: Aortic valve replacement
     Dosage: 75 MG, DAILY
     Route: 048
     Dates: start: 20230815
  7. SPIRIVA [Concomitant]
     Active Substance: TIOTROPIUM BROMIDE MONOHYDRATE
     Dosage: 18 UG, DAILY
     Route: 055
     Dates: start: 20230815
  8. TORSEMIDE [Concomitant]
     Active Substance: TORSEMIDE
     Indication: Hypervolaemia
     Dosage: 10 MG, AS NEEDED
     Route: 048
     Dates: start: 20210713
  9. TORSEMIDE [Concomitant]
     Active Substance: TORSEMIDE
     Dosage: 5 MG, AS NEEDED
     Route: 048
     Dates: start: 20231116
  10. DAFALGAN [Concomitant]
     Active Substance: ACETAMINOPHEN
     Dosage: 1000 MG, AS NEEDED
     Route: 048
     Dates: start: 20210215

REACTIONS (7)
  - Hallucination [Not Recovered/Not Resolved]
  - Withdrawal syndrome [Recovering/Resolving]
  - Confusional state [Recovering/Resolving]
  - Dizziness [Recovering/Resolving]
  - Headache [Recovering/Resolving]
  - Visual impairment [Recovering/Resolving]
  - Palpitations [Recovering/Resolving]

NARRATIVE: CASE EVENT DATE: 20240426
